FAERS Safety Report 7192887-7 (Version None)
Quarter: 2010Q4

REPORT INFORMATION
  Report Type: 
  Country: None (occurrence: None)
  Receive Date: 20101223
  Receipt Date: 20100830
  Transmission Date: 20110411
  Serious: No
  Sender: FDA-Public Use
  Company Number: US-AMGEN-KDL434844

PATIENT

DRUGS (3)
  1. ENBREL [Suspect]
     Indication: RHEUMATOID ARTHRITIS
     Dosage: 50 MG, QWK
     Dates: start: 20100801
  2. CONJUGATED ESTROGEN [Concomitant]
     Dosage: UNK UNK, UNK
  3. PAROXETINE HCL [Concomitant]
     Dosage: UNK UNK, UNK

REACTIONS (1)
  - INJECTION SITE REACTION [None]
